FAERS Safety Report 25542446 (Version 1)
Quarter: 2025Q3

REPORT INFORMATION
  Report Type: Spontaneous
  Country: EU (occurrence: EU)
  Receive Date: 20250711
  Receipt Date: 20250711
  Transmission Date: 20251021
  Serious: Yes (Life-Threatening, Other)
  Sender: AUROBINDO
  Company Number: EU-AFSSAPS-BS2025000520

PATIENT
  Age: 41 Year
  Sex: Female
  Weight: 74 kg

DRUGS (7)
  1. DOXORUBICIN [Suspect]
     Active Substance: DOXORUBICIN
     Indication: Spindle cell sarcoma
     Route: 042
     Dates: start: 20250512, end: 20250512
  2. GABAPENTIN [Suspect]
     Active Substance: GABAPENTIN
     Indication: Pain
     Dosage: 300 MILLIGRAM, 3 TIMES A DAY
     Route: 048
     Dates: end: 20250514
  3. IFOSFAMIDE [Suspect]
     Active Substance: IFOSFAMIDE
     Indication: Spindle cell sarcoma
     Dosage: 5360 MILLIGRAM, ONCE A DAY
     Route: 042
     Dates: start: 20250512, end: 20250513
  4. MESNA [Suspect]
     Active Substance: MESNA
     Indication: Spindle cell sarcoma
     Dosage: 6400 MILLIGRAM, ONCE A DAY
     Route: 042
     Dates: start: 20250512, end: 20250513
  5. METOCLOPRAMIDE [Suspect]
     Active Substance: METOCLOPRAMIDE
     Indication: Nausea
     Dosage: 1 DOSAGE FORM, ONCE A DAY
     Route: 042
     Dates: end: 20250514
  6. OXYCODONE [Suspect]
     Active Substance: OXYCODONE
     Indication: Pain
     Dosage: 40 MILLIGRAM, TWO TIMES A DAY
     Route: 048
     Dates: end: 20250514
  7. OXYCODONE HYDROCHLORIDE [Suspect]
     Active Substance: OXYCODONE HYDROCHLORIDE
     Indication: Pain
     Dosage: 10 MILLIGRAM, EVERY FOUR HOUR
     Route: 048
     Dates: end: 20250514

REACTIONS (1)
  - Toxic encephalopathy [Recovered/Resolved]

NARRATIVE: CASE EVENT DATE: 20250514
